FAERS Safety Report 17782749 (Version 1)
Quarter: 2020Q2

REPORT INFORMATION
  Report Type: Spontaneous
  Country: US (occurrence: US)
  Receive Date: 20200513
  Receipt Date: 20200513
  Transmission Date: 20200714
  Serious: No
  Sender: FDA-Public Use
  Company Number: US-LUNDBECK-DKLU3016163

PATIENT
  Age: 75 Year
  Sex: Female

DRUGS (2)
  1. NORTHERA [Suspect]
     Active Substance: DROXIDOPA
     Indication: NEURODEGENERATIVE DISORDER
     Route: 048
  2. NORTHERA [Suspect]
     Active Substance: DROXIDOPA
     Route: 048

REACTIONS (8)
  - Asthenia [Unknown]
  - Blood pressure orthostatic decreased [Unknown]
  - Vertigo [Unknown]
  - Dysstasia [Unknown]
  - Gait disturbance [Unknown]
  - Dizziness [Unknown]
  - Fatigue [Unknown]
  - Drug ineffective [Unknown]
